FAERS Safety Report 4447921-1 (Version None)
Quarter: 2004Q3

REPORT INFORMATION
  Report Type: 
  Country: None (occurrence: None)
  Receive Date: 20040909
  Receipt Date: 20040909
  Transmission Date: 20050211
  Serious: Yes (Other)
  Sender: FDA-Public Use
  Company Number: None

PATIENT
  Sex: Female
  Weight: 68.0396 kg

DRUGS (1)
  1. ZOLOFT [Suspect]
     Indication: DEPRESSION
     Dosage: 1   ONCE A DAY   ORAL
     Route: 048
     Dates: start: 20030901, end: 20040901

REACTIONS (3)
  - DIZZINESS [None]
  - HYPOAESTHESIA [None]
  - PREGNANCY [None]
